FAERS Safety Report 10311241 (Version 3)
Quarter: 2015Q4

REPORT INFORMATION
  Report Type: Spontaneous
  Country: US (occurrence: US)
  Receive Date: 20140717
  Receipt Date: 20151117
  Transmission Date: 20160304
  Serious: Yes (Hospitalization)
  Sender: FDA-Public Use
  Company Number: US-BAYER-2014-106588

PATIENT
  Age: 22 Year
  Sex: Female
  Weight: 56.69 kg

DRUGS (4)
  1. PRENATAL VITAMINS [Concomitant]
     Active Substance: VITAMINS
  2. MIRENA [Suspect]
     Active Substance: LEVONORGESTREL
     Indication: CONTRACEPTION
     Dosage: 20 MCG/24HR, CONT
     Route: 015
     Dates: start: 20120315, end: 20120507
  3. MOTRIN [Concomitant]
     Active Substance: IBUPROFEN
     Dosage: 800 MG, UNK
  4. LORATADINE. [Concomitant]
     Active Substance: LORATADINE
     Indication: RHINITIS ALLERGIC

REACTIONS (6)
  - Abdominal pain [None]
  - Injury [None]
  - Uterine perforation [None]
  - Medical device pain [None]
  - Post procedural discomfort [Not Recovered/Not Resolved]
  - Abdominal pain lower [None]

NARRATIVE: CASE EVENT DATE: 201205
